FAERS Safety Report 9154150 (Version 2)
Quarter: 2013Q1

REPORT INFORMATION
  Report Type: Spontaneous
  Country: GB (occurrence: GB)
  Receive Date: 20130311
  Receipt Date: 20130325
  Transmission Date: 20140127
  Serious: Yes (Other)
  Sender: FDA-Public Use
  Company Number: GB-PFIZER INC-2013078709

PATIENT
  Age: 82 Year
  Sex: Male

DRUGS (2)
  1. ALFUZOSIN [Suspect]
     Indication: BENIGN PROSTATIC HYPERPLASIA
     Dosage: 10MG, 1X/DAY
     Route: 048
     Dates: start: 20130218, end: 20130221
  2. CLOPIDOGREL [Concomitant]
     Dosage: UNK

REACTIONS (1)
  - Diplopia [Recovered/Resolved]
